FAERS Safety Report 5661425-X (Version None)
Quarter: 2008Q1

REPORT INFORMATION
  Report Type: 
  Country: None (occurrence: None)
  Receive Date: 20080311
  Receipt Date: 20080228
  Transmission Date: 20080703
  Serious: Yes (Other)
  Sender: FDA-Public Use
  Company Number: BR-PFIZER INC-2008019999

PATIENT
  Sex: Female
  Weight: 61 kg

DRUGS (4)
  1. DEPO-PROVERA SUSPENSION/INJ [Suspect]
     Indication: CONTRACEPTION
     Dates: start: 20000101, end: 20000101
  2. DEPO-PROVERA SUSPENSION/INJ [Suspect]
     Dates: start: 20080125, end: 20080125
  3. FLUOXETINE [Concomitant]
     Route: 065
  4. PROPRANOLOL [Concomitant]
     Route: 065

REACTIONS (4)
  - AMENORRHOEA [None]
  - BARTHOLIN'S CYST [None]
  - SYNCOPE [None]
  - TREMOR [None]
